FAERS Safety Report 20150255 (Version 1)
Quarter: 2021Q4

REPORT INFORMATION
  Report Type: Report from Study
  Country: US (occurrence: US)
  Receive Date: 20211206
  Receipt Date: 20211206
  Transmission Date: 20220303
  Serious: No
  Sender: FDA-Public Use
  Company Number: US-NOVARTISTESTPH-NVSC2021US277400

PATIENT
  Sex: Female

DRUGS (1)
  1. PIQRAY [Suspect]
     Active Substance: ALPELISIB
     Indication: Breast cancer
     Dosage: 300 MG, QD
     Route: 048
     Dates: start: 202111

REACTIONS (6)
  - Oral discomfort [Unknown]
  - Hunger [Unknown]
  - Feeding disorder [Unknown]
  - Dyspepsia [Unknown]
  - Vomiting [Unknown]
  - Ageusia [Unknown]
